FAERS Safety Report 20453896 (Version 2)
Quarter: 2022Q2

REPORT INFORMATION
  Report Type: Other
  Country: CA (occurrence: CA)
  Receive Date: 20220210
  Receipt Date: 20220521
  Transmission Date: 20220720
  Serious: Yes (Hospitalization, Other)
  Sender: FDA-Public Use
  Company Number: CA-CELLTRION INC.-2022CA001237

PATIENT

DRUGS (119)
  1. TRASTUZUMAB [Suspect]
     Active Substance: TRASTUZUMAB
     Indication: Tardive dyskinesia
     Dosage: 626.0 MG
     Route: 065
  2. TRASTUZUMAB [Suspect]
     Active Substance: TRASTUZUMAB
     Dosage: 626.0 MG
     Route: 065
  3. TRASTUZUMAB [Suspect]
     Active Substance: TRASTUZUMAB
     Dosage: 866.0 MILLIGRAM, 1 EVERY 1 DAY
     Route: 065
  4. TRASTUZUMAB [Suspect]
     Active Substance: TRASTUZUMAB
     Dosage: UNK
     Route: 065
  5. TRASTUZUMAB [Suspect]
     Active Substance: TRASTUZUMAB
     Dosage: 626.0 MG
     Route: 065
  6. TRASTUZUMAB [Suspect]
     Active Substance: TRASTUZUMAB
     Dosage: 866.0 MILLIGRAM, 1 EVERY 1 DAY
     Route: 065
  7. TRASTUZUMAB [Suspect]
     Active Substance: TRASTUZUMAB
     Dosage: 626.0 MG, 1 EVERY 1 DAYS
     Route: 065
  8. TRASTUZUMAB [Suspect]
     Active Substance: TRASTUZUMAB
     Dosage: 626.0 MG
     Route: 065
  9. TRASTUZUMAB [Suspect]
     Active Substance: TRASTUZUMAB
     Dosage: UNK
     Route: 065
  10. TRASTUZUMAB [Suspect]
     Active Substance: TRASTUZUMAB
     Dosage: 866.0 MILLIGRAM
     Route: 065
  11. TRASTUZUMAB [Suspect]
     Active Substance: TRASTUZUMAB
     Dosage: UNK
     Route: 048
  12. ACETAMINOPHEN\CODEINE PHOSPHATE [Suspect]
     Active Substance: ACETAMINOPHEN\CODEINE PHOSPHATE
     Indication: Tardive dyskinesia
     Route: 065
  13. ACETAMINOPHEN\CODEINE PHOSPHATE [Suspect]
     Active Substance: ACETAMINOPHEN\CODEINE PHOSPHATE
     Dosage: 30.0 MG, 1 EVERY 1 DAYS
     Route: 065
  14. ACETAMINOPHEN\CODEINE PHOSPHATE [Suspect]
     Active Substance: ACETAMINOPHEN\CODEINE PHOSPHATE
     Dosage: 30.0 MG, 1 EVERY 4 HOURS
     Route: 065
  15. ACETAMINOPHEN\CODEINE PHOSPHATE [Suspect]
     Active Substance: ACETAMINOPHEN\CODEINE PHOSPHATE
     Dosage: 30.0 MG, 1 EVERY 1 DAYS
     Route: 065
  16. ACETAMINOPHEN\CODEINE PHOSPHATE [Suspect]
     Active Substance: ACETAMINOPHEN\CODEINE PHOSPHATE
     Dosage: 30.0 MG, 1 EVERY 4 HOURS
     Route: 065
  17. ACETAMINOPHEN\CODEINE PHOSPHATE [Suspect]
     Active Substance: ACETAMINOPHEN\CODEINE PHOSPHATE
     Dosage: 30.0 MG, 1 EVERY 4 HOURS
     Route: 065
  18. ACETAMINOPHEN\CODEINE PHOSPHATE [Suspect]
     Active Substance: ACETAMINOPHEN\CODEINE PHOSPHATE
     Dosage: 30.0 MG, 1 EVERY 1 DAYS
     Route: 065
  19. BETAMETHASONE [Suspect]
     Active Substance: BETAMETHASONE
     Indication: Tardive dyskinesia
     Dosage: UNK, EVERY 12 HOURS
     Route: 048
  20. BETAMETHASONE [Suspect]
     Active Substance: BETAMETHASONE
     Dosage: UNK
     Route: 048
  21. BETAMETHASONE [Suspect]
     Active Substance: BETAMETHASONE
     Dosage: 2 EVERY 1 DAYS
     Route: 065
  22. DEXAMETHASONE [Suspect]
     Active Substance: DEXAMETHASONE
     Indication: Supportive care
     Dosage: 20.0 MG, 1 EVERY 1 DAYS
     Route: 048
  23. DEXAMETHASONE [Suspect]
     Active Substance: DEXAMETHASONE
     Dosage: 20.0 MG, 1 EVERY 1 DAYS
     Route: 048
  24. DEXAMETHASONE [Suspect]
     Active Substance: DEXAMETHASONE
     Dosage: 20.0 MG, 1 EVERY 1 DAYS
     Route: 048
  25. DEXAMETHASONE [Suspect]
     Active Substance: DEXAMETHASONE
     Dosage: 20.0 MG, 1 EVERY 1 DAYS
     Route: 048
  26. DEXAMETHASONE [Suspect]
     Active Substance: DEXAMETHASONE
     Dosage: UNK
     Route: 048
  27. DEXAMETHASONE [Suspect]
     Active Substance: DEXAMETHASONE
     Dosage: 20.0 MG, 1 EVERY 1 DAYS
     Route: 048
  28. DEXAMETHASONE [Suspect]
     Active Substance: DEXAMETHASONE
     Indication: Supportive care
     Dosage: 20.0 MG, 1 EVERY 1 DAYS
     Route: 048
  29. DOXORUBICIN [Suspect]
     Active Substance: DOXORUBICIN
     Indication: Breast cancer
     Dosage: 136.0 MG, 1 EVERY 2 WEEKS
     Route: 042
  30. DOXORUBICIN [Suspect]
     Active Substance: DOXORUBICIN
     Indication: Breast cancer
     Dosage: 136.0 MG
     Route: 042
  31. DOXORUBICIN [Suspect]
     Active Substance: DOXORUBICIN
     Dosage: 136.0 MG, 1 EVERY 2 WEEKS
     Route: 042
  32. DOXORUBICIN [Suspect]
     Active Substance: DOXORUBICIN
     Dosage: 136.0 MG, 1 EVERY 2 WEEKS
     Route: 042
  33. DOXORUBICIN [Suspect]
     Active Substance: DOXORUBICIN
     Dosage: UNK
     Route: 042
  34. EMEND [Suspect]
     Active Substance: APREPITANT
     Indication: Supportive care
     Dosage: 125.0 MG, 1 EVERY 1 DAYS
     Route: 048
  35. EMEND [Suspect]
     Active Substance: APREPITANT
     Dosage: 125.0 MG, 1 EVERY 1 DAYS
     Route: 048
  36. EMEND [Suspect]
     Active Substance: APREPITANT
     Dosage: 80.0 MG, 1 EVERY 1 DAYS
     Route: 048
  37. EMEND [Suspect]
     Active Substance: APREPITANT
     Dosage: UNK
     Route: 048
  38. EMEND [Suspect]
     Active Substance: APREPITANT
     Dosage: 80.0 MG, 1 EVERY 1 DAYS
     Route: 048
  39. EMEND [Suspect]
     Active Substance: APREPITANT
     Dosage: 80.0 MG, 1 EVERY 1 DAYS
     Route: 048
  40. EMEND [Suspect]
     Active Substance: APREPITANT
     Dosage: 125 MG
     Route: 048
  41. EMEND [Suspect]
     Active Substance: APREPITANT
     Dosage: 80.0 MG, 1 EVERY 1 DAYS
     Route: 048
  42. EMEND [Suspect]
     Active Substance: APREPITANT
     Dosage: 125.0 MG, 1 EVERY 1 DAYS
     Route: 048
  43. EMEND [Suspect]
     Active Substance: APREPITANT
     Dosage: 125.0 MG, 1 EVERY 1 DAYS
     Route: 048
  44. EMEND [Suspect]
     Active Substance: APREPITANT
     Dosage: 125.0 MG, 1 EVERY 1 DAYS
     Route: 048
  45. EMEND [Suspect]
     Active Substance: APREPITANT
     Dosage: 80.0 MG, 1 EVERY 1 DAYS
     Route: 048
  46. EMEND [Suspect]
     Active Substance: APREPITANT
     Dosage: 80.0 MG, 1 EVERY 1 DAYS
     Route: 048
  47. EMEND [Suspect]
     Active Substance: APREPITANT
     Dosage: 125.0 MG, 1 EVERY 1 DAYS
     Route: 048
  48. EMEND [Suspect]
     Active Substance: APREPITANT
     Dosage: 80.0 MG, 1 EVERY 1 DAYS
     Route: 048
  49. EMEND [Suspect]
     Active Substance: APREPITANT
     Dosage: 125.0 MG
     Route: 048
  50. EMEND [Suspect]
     Active Substance: APREPITANT
     Dosage: 80.0 MG, 1 EVERY 1 DAYS
     Route: 048
  51. EMEND [Suspect]
     Active Substance: APREPITANT
     Dosage: UNK
     Route: 048
  52. EMEND [Suspect]
     Active Substance: APREPITANT
     Dosage: UNK
     Route: 048
  53. EMEND [Suspect]
     Active Substance: APREPITANT
     Dosage: 80.0 MG, 1 EVERY 1 DAYS
     Route: 048
  54. EMEND [Suspect]
     Active Substance: APREPITANT
     Dosage: UNK
     Route: 048
  55. ENOXAPARIN [Suspect]
     Active Substance: ENOXAPARIN
     Indication: Tardive dyskinesia
     Dosage: 150 MG, 1 EVERY 1 DAYS
     Route: 058
  56. ENOXAPARIN [Suspect]
     Active Substance: ENOXAPARIN
     Dosage: 150 MG, 1 EVERY 1 DAYS
     Route: 058
  57. ENOXAPARIN [Suspect]
     Active Substance: ENOXAPARIN
     Dosage: UNK
     Route: 058
  58. ENOXAPARIN [Suspect]
     Active Substance: ENOXAPARIN
     Dosage: 150 MG, 1 EVERY 1 DAYS
     Route: 058
  59. LEVOFLOXACIN [Suspect]
     Active Substance: LEVOFLOXACIN
     Indication: Tardive dyskinesia
     Dosage: 500.0 MG, 1 EVERY 1 DAYS
     Route: 048
  60. LEVOFLOXACIN [Suspect]
     Active Substance: LEVOFLOXACIN
     Dosage: 500.0 MG
     Route: 048
  61. LEVOFLOXACIN [Suspect]
     Active Substance: LEVOFLOXACIN
     Dosage: 500.0 MG, 1 EVERY 1 DAYS
     Route: 048
  62. LEVOFLOXACIN [Suspect]
     Active Substance: LEVOFLOXACIN
     Indication: Tardive dyskinesia
     Dosage: 500.0 MG, 1 EVERY 1 DAYS
     Route: 048
  63. LORAZEPAM [Suspect]
     Active Substance: LORAZEPAM
     Indication: Tardive dyskinesia
     Dosage: 0.5 MG, 1 EVERY 1 DAYS
     Route: 048
  64. LORAZEPAM [Suspect]
     Active Substance: LORAZEPAM
     Dosage: 0.5 MG
     Route: 048
  65. LORAZEPAM [Suspect]
     Active Substance: LORAZEPAM
     Dosage: 0.5 MG, 2 EVERY 1 DAYS
     Route: 048
  66. LORAZEPAM [Suspect]
     Active Substance: LORAZEPAM
     Dosage: 0.5 MG, 1 EVERY 12 HOURS
     Route: 048
  67. LORAZEPAM [Suspect]
     Active Substance: LORAZEPAM
     Indication: Tardive dyskinesia
     Dosage: 0.5 MG, 2 EVERY 1 DAYS
     Route: 048
  68. METOCLOPRAMIDE [Suspect]
     Active Substance: METOCLOPRAMIDE
     Indication: Tardive dyskinesia
     Dosage: 10.0 MG, 4 EVERY 1 DAYS
     Route: 048
  69. METOCLOPRAMIDE [Suspect]
     Active Substance: METOCLOPRAMIDE
     Dosage: 10.0 MG, 1 EVERY 6 HOURS
     Route: 048
  70. METOCLOPRAMIDE [Suspect]
     Active Substance: METOCLOPRAMIDE
     Dosage: 10.0 MG, 4 EVERY 1 DAYS
     Route: 048
  71. METOCLOPRAMIDE [Suspect]
     Active Substance: METOCLOPRAMIDE
     Dosage: 10.0 MG, 1 EVERY 1 DAYS
     Route: 048
  72. NEULASTA [Suspect]
     Active Substance: PEGFILGRASTIM
     Indication: Supportive care
     Dosage: 6.0 MG
     Route: 058
  73. NEULASTA [Suspect]
     Active Substance: PEGFILGRASTIM
     Dosage: 6.0 MG
     Route: 058
  74. NEULASTA [Suspect]
     Active Substance: PEGFILGRASTIM
     Dosage: 6.0 MG, 1 EVERY 1 DAYS
     Route: 058
  75. NEULASTA [Suspect]
     Active Substance: PEGFILGRASTIM
     Dosage: 6.0 MG
     Route: 058
  76. NEULASTA [Suspect]
     Active Substance: PEGFILGRASTIM
     Dosage: 6.0 MG
     Route: 058
  77. NEULASTA [Suspect]
     Active Substance: PEGFILGRASTIM
     Indication: Supportive care
     Dosage: 6.0 MG
     Route: 058
  78. NEUPOGEN [Suspect]
     Active Substance: FILGRASTIM
     Indication: Supportive care
     Dosage: 480 MICROGRAM, 1 EVERY 1 DAYS
     Route: 048
  79. NEUPOGEN [Suspect]
     Active Substance: FILGRASTIM
     Dosage: 480 MICROGRAM, 1 EVERY 1 DAYS
     Route: 065
  80. NEUPOGEN [Suspect]
     Active Substance: FILGRASTIM
     Dosage: 480 MICROGRAM, 1 EVERY 1 DAYS
     Route: 065
  81. NEUPOGEN [Suspect]
     Active Substance: FILGRASTIM
     Dosage: 480 MICROGRAM, 1 EVERY 1 DAYS
     Route: 065
  82. NEUPOGEN [Suspect]
     Active Substance: FILGRASTIM
     Dosage: 125.0 MG, 1 EVERY 1 DAYS
     Route: 048
  83. NEUPOGEN [Suspect]
     Active Substance: FILGRASTIM
     Indication: Supportive care
     Dosage: 125.0 MG, 1 EVERY 1 DAYS
     Route: 048
  84. ONDANSETRON [Suspect]
     Active Substance: ONDANSETRON
     Indication: Supportive care
     Route: 048
  85. ONDANSETRON [Suspect]
     Active Substance: ONDANSETRON
     Dosage: UNK
     Route: 065
  86. ONDANSETRON [Suspect]
     Active Substance: ONDANSETRON
     Dosage: 8.0 MG
     Route: 048
  87. ONDANSETRON [Suspect]
     Active Substance: ONDANSETRON
     Dosage: 8.0 MG
     Route: 048
  88. ONDANSETRON [Suspect]
     Active Substance: ONDANSETRON
     Dosage: 8.0 MG
     Route: 048
  89. ONDANSETRON [Suspect]
     Active Substance: ONDANSETRON
     Dosage: 8.0 MG
     Route: 048
  90. ONDANSETRON [Suspect]
     Active Substance: ONDANSETRON
     Dosage: 8.0 MG
     Route: 048
  91. ONDANSETRON [Suspect]
     Active Substance: ONDANSETRON
     Dosage: 8.0 MG
     Route: 048
  92. ONDANSETRON [Suspect]
     Active Substance: ONDANSETRON
     Dosage: 8.0 MG
     Route: 048
  93. ONDANSETRON [Suspect]
     Active Substance: ONDANSETRON
     Dosage: 8.0 MG, 1 EVERY 1 DAYS
     Route: 048
  94. ONDANSETRON [Suspect]
     Active Substance: ONDANSETRON
     Dosage: 8.0 MG
     Route: 048
  95. ONDANSETRON [Suspect]
     Active Substance: ONDANSETRON
     Dosage: 8.0 MG
     Route: 048
  96. ONDANSETRON [Suspect]
     Active Substance: ONDANSETRON
     Indication: Supportive care
     Dosage: 8.0 MG, 1 EVERY 1 DAYS
     Route: 048
  97. PACLITAXEL [Suspect]
     Active Substance: PACLITAXEL
     Indication: Supportive care
     Dosage: 393.0 MG
     Route: 042
  98. PACLITAXEL [Suspect]
     Active Substance: PACLITAXEL
     Indication: Breast cancer
     Dosage: 393.0 MG,1 EVERY 1 DAYS
     Route: 042
  99. PACLITAXEL [Suspect]
     Active Substance: PACLITAXEL
     Dosage: 303.0 MG
     Route: 042
  100. PACLITAXEL [Suspect]
     Active Substance: PACLITAXEL
     Dosage: 303.0 MG
     Route: 042
  101. PACLITAXEL [Suspect]
     Active Substance: PACLITAXEL
     Dosage: 303.0 MG
     Route: 042
  102. PACLITAXEL [Suspect]
     Active Substance: PACLITAXEL
     Dosage: 243 MG, 1 EVERY 1 DAYS
     Route: 042
  103. PACLITAXEL [Suspect]
     Active Substance: PACLITAXEL
     Dosage: 393.0 MG
     Route: 042
  104. PACLITAXEL [Suspect]
     Active Substance: PACLITAXEL
     Indication: Supportive care
     Dosage: 243.0 MG
     Route: 042
  105. PACLITAXEL [Suspect]
     Active Substance: PACLITAXEL
     Indication: Breast cancer
  106. CYCLOPHOSPHAMIDE [Suspect]
     Active Substance: CYCLOPHOSPHAMIDE
     Indication: Tardive dyskinesia
     Dosage: 1360.0 MG, 1 EVERY 2 WEEKS
     Route: 042
  107. CYCLOPHOSPHAMIDE [Suspect]
     Active Substance: CYCLOPHOSPHAMIDE
     Indication: Breast cancer
     Dosage: 1360.0 MG, 1 EVERY 2 WEEKS
     Route: 042
  108. CYCLOPHOSPHAMIDE [Suspect]
     Active Substance: CYCLOPHOSPHAMIDE
     Dosage: UNK
     Route: 042
  109. CYCLOPHOSPHAMIDE [Suspect]
     Active Substance: CYCLOPHOSPHAMIDE
     Dosage: UNK
     Route: 065
  110. CYCLOPHOSPHAMIDE [Suspect]
     Active Substance: CYCLOPHOSPHAMIDE
     Dosage: 1360.0 MG
     Route: 042
  111. CYCLOPHOSPHAMIDE [Suspect]
     Active Substance: CYCLOPHOSPHAMIDE
     Indication: Tardive dyskinesia
     Dosage: 1360.0 MG, 1 EVERY 2 WEEKS
     Route: 042
  112. CYCLOPHOSPHAMIDE [Suspect]
     Active Substance: CYCLOPHOSPHAMIDE
     Indication: Breast cancer
  113. RANITIDINE HYDROCHLORIDE [Suspect]
     Active Substance: RANITIDINE HYDROCHLORIDE
     Indication: Tardive dyskinesia
     Dosage: 150.0 MG, 2 EVERY 1 DAYS
     Route: 048
  114. RANITIDINE HYDROCHLORIDE [Suspect]
     Active Substance: RANITIDINE HYDROCHLORIDE
     Dosage: 150.0 MG, 1 EVERY 2 WEEKS
     Route: 048
  115. RANITIDINE HYDROCHLORIDE [Suspect]
     Active Substance: RANITIDINE HYDROCHLORIDE
     Dosage: 150.0 MG, 2 EVERY 1 DAYS
     Route: 048
  116. RANITIDINE HYDROCHLORIDE [Suspect]
     Active Substance: RANITIDINE HYDROCHLORIDE
     Dosage: 150.0 MG
     Route: 048
  117. RANITIDINE HYDROCHLORIDE [Suspect]
     Active Substance: RANITIDINE HYDROCHLORIDE
     Dosage: 150.0 MG
     Route: 048
  118. RANITIDINE HYDROCHLORIDE [Suspect]
     Active Substance: RANITIDINE HYDROCHLORIDE
     Dosage: UNK
     Route: 048
  119. RANITIDINE HYDROCHLORIDE [Suspect]
     Active Substance: RANITIDINE HYDROCHLORIDE
     Dosage: 150.0 MG, EVERY 12 HOURS
     Route: 048

REACTIONS (14)
  - Atelectasis [Recovered/Resolved]
  - Computerised tomogram thorax [Recovered/Resolved]
  - Computerised tomogram thorax abnormal [Recovered/Resolved]
  - Cough [Recovered/Resolved]
  - Dyspnoea [Recovered/Resolved]
  - Fatigue [Recovered/Resolved]
  - Gastrointestinal disorder [Recovered/Resolved]
  - Hypoxia [Recovered/Resolved]
  - Nausea [Recovered/Resolved]
  - Pyrexia [Recovered/Resolved]
  - Rash [Recovered/Resolved]
  - Off label use [Recovered/Resolved]
  - Off label use [Unknown]
  - Off label use [Unknown]
